FAERS Safety Report 4916471-8 (Version None)
Quarter: 2006Q1

REPORT INFORMATION
  Report Type: 
  Country: None (occurrence: None)
  Receive Date: 20060214
  Receipt Date: 20060131
  Transmission Date: 20060701
  Serious: Yes (Other)
  Sender: FDA-Public Use
  Company Number: PHBS2006BE01261

PATIENT
  Age: 74 Year
  Sex: Female

DRUGS (10)
  1. VISUDYNE [Suspect]
     Indication: MACULAR DEGENERATION
     Dates: start: 20051005, end: 20051005
  2. GLUCADOL [Concomitant]
  3. ANAFRINIL [Concomitant]
  4. ALPRAZOLAM [Concomitant]
  5. REDOMEX [Concomitant]
  6. LORAZEPAM [Concomitant]
  7. CAMPRAL [Concomitant]
  8. ZYPREXA [Concomitant]
  9. ZOCOR [Concomitant]
  10. FOSAMAX [Concomitant]

REACTIONS (1)
  - MYASTHENIA GRAVIS [None]
